FAERS Safety Report 11988860 (Version 3)
Quarter: 2016Q1

REPORT INFORMATION
  Report Type: Report from Study
  Country: JP (occurrence: JP)
  Receive Date: 20160202
  Receipt Date: 20160222
  Transmission Date: 20160526
  Serious: Yes (Hospitalization, Other)
  Sender: FDA-Public Use
  Company Number: JP-RECORDATI RARE DISEASES-JP-R13005-16-00018

PATIENT
  Age: 1 Day
  Sex: Female
  Weight: .98 kg

DRUGS (16)
  1. SALINE [Concomitant]
     Indication: PATENT DUCTUS ARTERIOSUS
     Route: 065
  2. NEOPROFEN [Suspect]
     Active Substance: IBUPROFEN LYSINE
     Route: 042
  3. GLUCOSE [Concomitant]
     Active Substance: DEXTROSE
     Indication: PRODUCT USED FOR UNKNOWN INDICATION
     Route: 042
  4. SALINE [Concomitant]
     Route: 065
  5. NACL [Concomitant]
     Active Substance: SODIUM CHLORIDE
     Indication: PRODUCT USED FOR UNKNOWN INDICATION
     Dosage: 44ML/10% NACL
     Route: 042
     Dates: start: 20160122
  6. CALCICOL [Concomitant]
     Active Substance: CALCIUM GLUCONATE
     Indication: PRODUCT USED FOR UNKNOWN INDICATION
     Dosage: 5ML/GLUCOSE 15% 44ML/10% NACL 1ML
     Route: 042
     Dates: start: 20160122, end: 20160123
  7. INOVAN [Concomitant]
     Active Substance: DOPAMINE HYDROCHLORIDE
     Indication: PRODUCT USED FOR UNKNOWN INDICATION
     Dosage: 6 MG/GLUCOSE 5%
     Route: 042
     Dates: start: 20160121, end: 20160124
  8. MARTOS [Concomitant]
     Indication: PRODUCT USED FOR UNKNOWN INDICATION
     Dosage: 50 ML/HEPARIN SODIUM 0.1 ML
     Route: 042
     Dates: start: 20160120
  9. HEPARIN SODIUM. [Concomitant]
     Active Substance: HEPARIN SODIUM
     Indication: PRODUCT USED FOR UNKNOWN INDICATION
     Route: 042
     Dates: start: 20150120
  10. HEPARIN [Concomitant]
     Active Substance: HEPARIN SODIUM
     Indication: PRODUCT USED FOR UNKNOWN INDICATION
     Dosage: 0.04ML/GLUCOSE 5% 20ML
     Route: 042
     Dates: start: 20160120
  11. NEOPROFEN [Suspect]
     Active Substance: IBUPROFEN LYSINE
     Indication: PATENT DUCTUS ARTERIOSUS
     Route: 042
  12. VICCILLIN [Concomitant]
     Active Substance: AMPICILLIN
     Indication: PRODUCT USED FOR UNKNOWN INDICATION
     Dosage: 50 MG/SALINE 2.5 ML
     Route: 042
     Dates: start: 20160120, end: 20160124
  13. AMIKAMYCIN [Concomitant]
     Active Substance: AMIKACIN SULFATE
     Indication: PRODUCT USED FOR UNKNOWN INDICATION
     Dosage: 18 MG/SALINE 1ML, DISTILLED WATER FOR INJECTION 5ML
     Route: 042
     Dates: start: 20160120, end: 20160124
  14. FLUCONAZOLE. [Concomitant]
     Active Substance: FLUCONAZOLE
     Indication: PRODUCT USED FOR UNKNOWN INDICATION
     Route: 042
     Dates: start: 20160120, end: 20160207
  15. FENTANIL [Concomitant]
     Active Substance: FENTANYL
     Indication: PRODUCT USED FOR UNKNOWN INDICATION
     Dosage: 0.03MG/GLUCOSE 5%
     Route: 042
     Dates: start: 20160122, end: 20160126
  16. DISTILLED WATER FOR INJECTION [Concomitant]
     Indication: PRODUCT USED FOR UNKNOWN INDICATION
     Route: 065
     Dates: start: 20160120

REACTIONS (4)
  - Jaundice neonatal [Recovered/Resolved]
  - Metabolic acidosis [Recovered/Resolved]
  - Pneumothorax [Recovered/Resolved]
  - Renal failure [Recovered/Resolved]

NARRATIVE: CASE EVENT DATE: 20160122
